FAERS Safety Report 5447333-8 (Version None)
Quarter: 2007Q3

REPORT INFORMATION
  Report Type: 
  Country: None (occurrence: None)
  Receive Date: 20070910
  Receipt Date: 20070827
  Transmission Date: 20080115
  Serious: Yes (Hospitalization)
  Sender: FDA-Public Use
  Company Number: DE-BRISTOL-MYERS SQUIBB COMPANY-13901525

PATIENT
  Age: 29 Year
  Sex: Male

DRUGS (5)
  1. ENDOXAN [Suspect]
     Indication: HODGKIN'S DISEASE
     Dates: start: 20070328, end: 20070625
  2. ETOPOSIDE [Suspect]
     Indication: HODGKIN'S DISEASE
     Dates: start: 20070328, end: 20070627
  3. ADRIAMYCIN PFS [Suspect]
     Indication: HODGKIN'S DISEASE
     Dates: start: 20070328, end: 20070625
  4. BLEOMYCIN [Suspect]
     Indication: HODGKIN'S DISEASE
     Dates: start: 20070404, end: 20070702
  5. PROCARBAZINE [Suspect]
     Indication: HODGKIN'S DISEASE
     Dates: start: 20070328, end: 20070701

REACTIONS (3)
  - ASTHENIA [None]
  - DYSPNOEA [None]
  - PYREXIA [None]
